FAERS Safety Report 6971179-2 (Version None)
Quarter: 2010Q3

REPORT INFORMATION
  Report Type: 
  Country: None (occurrence: None)
  Receive Date: 20100824
  Receipt Date: 20100709
  Transmission Date: 20110219
  Serious: No
  Sender: FDA-Public Use
  Company Number: 311894

PATIENT
  Age: 55 Year
  Sex: Male
  Weight: 198.6 kg

DRUGS (2)
  1. VICTOZA [Suspect]
     Indication: DIABETES MELLITUS
     Dosage: SUBCUTANEOUS
     Route: 058
     Dates: start: 20100706
  2. METFORMIN HCL [Concomitant]

REACTIONS (5)
  - DECREASED APPETITE [None]
  - DEVICE MALFUNCTION [None]
  - DYSGEUSIA [None]
  - FATIGUE [None]
  - NAUSEA [None]
